FAERS Safety Report 7612828-5 (Version None)
Quarter: 2011Q3

REPORT INFORMATION
  Report Type: 
  Country: None (occurrence: None)
  Receive Date: 20110708
  Receipt Date: 20110623
  Transmission Date: 20111222
  Serious: Yes (Other)
  Sender: FDA-Public Use
  Company Number: 2011AP001299

PATIENT
  Age: 28 Year
  Sex: Female

DRUGS (10)
  1. MOMETASONE FUROATE [Concomitant]
  2. BECLOMETHASONE DIPROPIONATE [Concomitant]
  3. CITALOPRAM HYDROBROMIDE [Suspect]
     Indication: PRODUCT USED FOR UNKNOWN INDICATION
     Dates: start: 20110511
  4. DOSULEPIN (DOSULEPIN) [Concomitant]
  5. FLUOXETINE HYDROCHLORIDE [Concomitant]
  6. SERTRALINE HYDROCHLORIDE [Concomitant]
  7. ISOPROPYL MYRISTATE (ISOPROPYL MYRISTATE) [Concomitant]
  8. CETIRIZINE HCL [Concomitant]
  9. LIGHT LIQUID PARAFFIN (LIGHT LIQUID PARAFFIN) [Concomitant]
  10. ALBUTEROL SULFATE [Concomitant]

REACTIONS (2)
  - CONTUSION [None]
  - YAWNING [None]
